FAERS Safety Report 25300939 (Version 1)
Quarter: 2025Q2

REPORT INFORMATION
  Report Type: Spontaneous
  Country: US (occurrence: US)
  Receive Date: 20250512
  Receipt Date: 20250512
  Transmission Date: 20250717
  Serious: No
  Sender: VERTEX
  Company Number: US-VERTEX PHARMACEUTICALS-2025-007079

PATIENT
  Age: 37 Year
  Sex: Male

DRUGS (1)
  1. JOURNAVX [Suspect]
     Active Substance: SUZETRIGINE
     Indication: Product used for unknown indication
     Route: 048

REACTIONS (3)
  - Fall [Unknown]
  - Joint dislocation [Unknown]
  - Hypoaesthesia [Unknown]
